FAERS Safety Report 25287258 (Version 2)
Quarter: 2025Q2

REPORT INFORMATION
  Report Type: Spontaneous
  Country: AT (occurrence: AT)
  Receive Date: 20250509
  Receipt Date: 20250515
  Transmission Date: 20250717
  Serious: Yes (Life-Threatening, Other)
  Sender: BAXTER
  Company Number: None

PATIENT
  Age: 62 Year
  Sex: Male
  Weight: 98 kg

DRUGS (5)
  1. CYCLOPHOSPHAMIDE [Suspect]
     Active Substance: CYCLOPHOSPHAMIDE
     Route: 042
     Dates: start: 20250327, end: 20250327
  2. DOXORUBICIN [Suspect]
     Active Substance: DOXORUBICIN
     Route: 042
     Dates: start: 20250327, end: 20250327
  3. ADCETRIS [Suspect]
     Active Substance: BRENTUXIMAB VEDOTIN
     Route: 042
     Dates: start: 20250326, end: 20250326
  4. ETOPOSIDE [Suspect]
     Active Substance: ETOPOSIDE
     Route: 042
     Dates: start: 20250327, end: 20250329
  5. DACARBAZINE [Suspect]
     Active Substance: DACARBAZINE
     Route: 042
     Dates: start: 20250328, end: 20250329

REACTIONS (7)
  - Ileus [Recovering/Resolving]
  - Shock haemorrhagic [Recovered/Resolved]
  - Small intestinal haemorrhage [Recovered/Resolved]
  - Enteritis [Recovering/Resolving]
  - Renal failure [Not Recovered/Not Resolved]
  - Gastrointestinal haemorrhage [Recovered/Resolved]
  - Jaundice [Recovered/Resolved]

NARRATIVE: CASE EVENT DATE: 20250403
